FAERS Safety Report 4607565-5 (Version None)
Quarter: 2005Q1

REPORT INFORMATION
  Report Type: 
  Country: None (occurrence: None)
  Receive Date: 20050314
  Receipt Date: 20050308
  Transmission Date: 20050727
  Serious: Yes (Hospitalization)
  Sender: FDA-Public Use
  Company Number: PHBS2005JP03492

PATIENT
  Age: 61 Year
  Sex: Male

DRUGS (5)
  1. DIOVAN [Suspect]
     Route: 048
     Dates: start: 20030101
  2. ARTIST [Concomitant]
     Route: 048
  3. CARDENALIN [Concomitant]
     Route: 048
  4. ADALAT [Concomitant]
     Route: 048
  5. CALCIUM CARBONATE [Concomitant]
     Route: 048

REACTIONS (4)
  - APLASTIC ANAEMIA [None]
  - HAEMATOCRIT DECREASED [None]
  - HAEMOGLOBIN DECREASED [None]
  - RENAL HAEMORRHAGE [None]
